FAERS Safety Report 5858833-0 (Version None)
Quarter: 2008Q3

REPORT INFORMATION
  Report Type: 
  Country: None (occurrence: None)
  Receive Date: 20080818
  Receipt Date: 20080501
  Transmission Date: 20090109
  Serious: No
  Sender: FDA-Public Use
  Company Number: WAES 0708USA05807

PATIENT
  Age: 64 Year
  Sex: Male
  Weight: 63.05 kg

DRUGS (9)
  1. JANUVIA [Suspect]
     Indication: DIABETES MELLITUS
     Dosage: BID/PO ; 100 MG/DAILY/PO
     Route: 048
     Dates: start: 20070214, end: 20070101
  2. JANUVIA [Suspect]
     Indication: DIABETES MELLITUS
     Dosage: BID/PO ; 100 MG/DAILY/PO
     Route: 048
     Dates: start: 20070101
  3. ALTACE [Concomitant]
  4. COZAAR [Concomitant]
  5. LANTUS [Concomitant]
  6. GEMFIBROZIL [Concomitant]
  7. GLYBURIDE [Concomitant]
  8. METFORMIN HCL [Concomitant]
  9. NIACIN [Concomitant]

REACTIONS (4)
  - ABDOMINAL DISTENSION [None]
  - ABDOMINAL PAIN [None]
  - HYPOGLYCAEMIA [None]
  - WRONG TECHNIQUE IN DRUG USAGE PROCESS [None]
